FAERS Safety Report 7536180-9 (Version None)
Quarter: 2011Q2

REPORT INFORMATION
  Report Type: 
  Country: None (occurrence: None)
  Receive Date: 20110602
  Receipt Date: 20110520
  Transmission Date: 20111010
  Serious: Yes (Death)
  Sender: FDA-Public Use
  Company Number: 2011BN000059

PATIENT

DRUGS (3)
  1. PREDNISONE [Suspect]
     Indication: MULTIPLE MYELOMA
     Dosage: 60 MG/M**2; QD FOR 4 D EVERY 6 WKS; PO
     Route: 048
  2. MELPHALAN HYDROCHLORIDE [Suspect]
     Indication: MULTIPLE MYELOMA
     Dosage: 9 MG/M**2; QD FOR 4 D EVERY 6 WKS; PO
     Route: 048
  3. THALIDOMIDE [Suspect]
     Indication: MULTIPLE MYELOMA
     Dosage: 100 MG; QD; PO
     Route: 048

REACTIONS (3)
  - NEUROPATHY PERIPHERAL [None]
  - THROMBOSIS [None]
  - BLOOD DISORDER [None]
